FAERS Safety Report 8310878-7 (Version None)
Quarter: 2012Q2

REPORT INFORMATION
  Report Type: 
  Country: None (occurrence: None)
  Receive Date: 20120425
  Receipt Date: 20120417
  Transmission Date: 20120825
  Serious: Yes (Hospitalization, Other)
  Sender: FDA-Public Use
  Company Number: US-BIOGENIDEC-2010BI027351

PATIENT
  Sex: Female

DRUGS (3)
  1. AVONEX [Suspect]
     Indication: MULTIPLE SCLEROSIS
     Route: 030
     Dates: start: 20000601, end: 20031001
  2. AVONEX [Suspect]
     Route: 030
     Dates: start: 20070801, end: 20100601
  3. AVONEX [Suspect]
     Route: 030
     Dates: start: 20120124, end: 20120322

REACTIONS (6)
  - NEOPLASM MALIGNANT [None]
  - CERVIX CARCINOMA [None]
  - INFLUENZA LIKE ILLNESS [None]
  - INFLUENZA [None]
  - HEART VALVE INCOMPETENCE [None]
  - PYREXIA [None]
